FAERS Safety Report 5578099-9 (Version None)
Quarter: 2007Q4

REPORT INFORMATION
  Report Type: 
  Country: None (occurrence: None)
  Receive Date: 20071231
  Receipt Date: 20071116
  Transmission Date: 20080405
  Serious: Yes (Hospitalization)
  Sender: FDA-Public Use
  Company Number: US-MERCK-0711USA03565

PATIENT
  Age: 91 Year
  Sex: Male

DRUGS (1)
  1. PRIMAXIN [Suspect]
     Route: 065

REACTIONS (2)
  - ADVERSE EVENT [None]
  - INCORRECT ROUTE OF DRUG ADMINISTRATION [None]
